FAERS Safety Report 13069203 (Version 4)
Quarter: 2017Q1

REPORT INFORMATION
  Report Type: Spontaneous
  Country: US (occurrence: US)
  Receive Date: 20161228
  Receipt Date: 20170224
  Transmission Date: 20170428
  Serious: No
  Sender: FDA-Public Use
  Company Number: US-PFIZER INC-2016596284

PATIENT
  Age: 47 Year
  Sex: Female

DRUGS (9)
  1. VISTARIL [Suspect]
     Active Substance: HYDROXYZINE PAMOATE
     Dosage: UNK, 4X/DAY
     Route: 048
  2. LEVOTHYROXINE. [Concomitant]
     Active Substance: LEVOTHYROXINE
     Indication: HYPOTHYROIDISM
     Dosage: 100 MG, DAILY
  3. CLONIDINE. [Concomitant]
     Active Substance: CLONIDINE
     Indication: ANXIETY
     Dosage: LOW DOSE
  4. VISTARIL [Suspect]
     Active Substance: HYDROXYZINE PAMOATE
     Dosage: 25 MG, 1X/DAY
     Route: 048
     Dates: end: 20161214
  5. SYNTHROID [Concomitant]
     Active Substance: LEVOTHYROXINE SODIUM
     Indication: THYROID DISORDER
     Dosage: 100 UG, 1X/DAY
     Route: 048
  6. ATENOLOL. [Concomitant]
     Active Substance: ATENOLOL
     Indication: ANXIETY
     Dosage: 25 MG, DAILY
  7. NEURONTIN [Concomitant]
     Active Substance: GABAPENTIN
     Indication: ANXIETY
     Dosage: UNK UNK, 3X/DAY  (2 PO TID) (UP TO 6 A DAY )
     Route: 048
  8. ATARAX [Suspect]
     Active Substance: HYDROXYZINE HYDROCHLORIDE
     Indication: ANXIETY
     Dosage: UNK UNK, 3X/DAY (10 MG 1-2  TID)
     Route: 048
     Dates: start: 201603
  9. VISTARIL [Suspect]
     Active Substance: HYDROXYZINE PAMOATE
     Indication: ANXIETY
     Dosage: UNK
     Route: 048
     Dates: start: 2015

REACTIONS (4)
  - Irritability [Unknown]
  - Discomfort [Unknown]
  - Feeding disorder [Unknown]
  - Skin burning sensation [Unknown]
